FAERS Safety Report 7257177-2 (Version None)
Quarter: 2011Q1

REPORT INFORMATION
  Report Type: 
  Country: None (occurrence: None)
  Receive Date: 20110129
  Receipt Date: 20100818
  Transmission Date: 20110831
  Serious: No
  Sender: FDA-Public Use
  Company Number: US-ABBOTT-10P-163-0664707-00

PATIENT
  Age: 30 Year
  Sex: Male

DRUGS (12)
  1. PROCHLORPERAZINE [Concomitant]
     Indication: HEADACHE
  2. AMITRIPTYLINNE [Concomitant]
     Indication: MIGRAINE
     Dosage: AT BEDTIME
  3. HUMIRA [Suspect]
     Indication: CROHN'S DISEASE
     Dates: start: 20100623
  4. SIMVASTATIN [Concomitant]
     Indication: BLOOD CHOLESTEROL INCREASED
  5. METFORMIN [Concomitant]
     Indication: BLOOD GLUCOSE INCREASED
  6. LISINOPRIL [Concomitant]
     Indication: BLOOD PRESSURE INCREASED
  7. RISPERIDONE [Concomitant]
     Indication: BIPOLAR DISORDER
     Dosage: ONE IN THE MORNING TWO AT NIGHT
  8. PROCHLORPERAZINE [Concomitant]
     Indication: NAUSEA
     Dosage: 1 EVERY 6 HOURS AS NEEDED
  9. IMETREX [Concomitant]
     Indication: MIGRAINE
  10. PENTASA [Concomitant]
     Indication: CROHN'S DISEASE
     Dosage: 500MG TWO (FOUR TIMES A DAY)
  11. CARBAMAZEPINE [Concomitant]
     Indication: BIPOLAR DISORDER
  12. CYMBALTA [Concomitant]
     Indication: DEPRESSION

REACTIONS (3)
  - FEELING ABNORMAL [None]
  - ASTHENIA [None]
  - NAUSEA [None]
